FAERS Safety Report 16430667 (Version 2)
Quarter: 2020Q1

REPORT INFORMATION
  Report Type: Spontaneous
  Country: JP (occurrence: JP)
  Receive Date: 20190614
  Receipt Date: 20200217
  Transmission Date: 20200409
  Serious: Yes (Death, Life-Threatening)
  Sender: FDA-Public Use
  Company Number: JP-ACTELION-A-CH2019-191428

PATIENT

DRUGS (1)
  1. OPSUMIT [Suspect]
     Active Substance: MACITENTAN
     Indication: BRONCHOPULMONARY ASPERGILLOSIS
     Dosage: 10 MG, QD
     Route: 048

REACTIONS (2)
  - Bronchopulmonary aspergillosis [Fatal]
  - Condition aggravated [Fatal]
